FAERS Safety Report 23964156 (Version 1)
Quarter: 2024Q2

REPORT INFORMATION
  Report Type: Spontaneous
  Country: US (occurrence: None)
  Receive Date: 20240611
  Receipt Date: 20240611
  Transmission Date: 20240715
  Serious: Yes (Hospitalization, Other)
  Sender: FDA-Public Use
  Company Number: None

PATIENT
  Age: 48 Year
  Sex: Male
  Weight: 97.1 kg

DRUGS (1)
  1. CROFAB [Suspect]
     Active Substance: CROTALIDAE POLYVALENT IMMUNE FAB (OVINE)
     Dosage: 4 TOT - TOTAL ONCE INTRAVENOUS DRIP
     Route: 041

REACTIONS (1)
  - Hypersensitivity [None]

NARRATIVE: CASE EVENT DATE: 20240608
